FAERS Safety Report 5565175-X (Version None)
Quarter: 2007Q4

REPORT INFORMATION
  Report Type: 
  Country: None (occurrence: None)
  Receive Date: 20071213
  Receipt Date: 20071203
  Transmission Date: 20080405
  Serious: Yes (Hospitalization)
  Sender: FDA-Public Use
  Company Number: 2007BI025416

PATIENT
  Age: 59 Year
  Sex: Male
  Weight: 74.8435 kg

DRUGS (1)
  1. AVONEX [Suspect]
     Indication: MULTIPLE SCLEROSIS
     Dosage: 30 UG; QW; IM
     Route: 030
     Dates: start: 20050101

REACTIONS (6)
  - FALL [None]
  - JOINT INJURY [None]
  - ROTATOR CUFF SYNDROME [None]
  - SYNCOPE [None]
  - TENDON RUPTURE [None]
  - UPPER RESPIRATORY TRACT INFECTION [None]
